FAERS Safety Report 24807388 (Version 3)
Quarter: 2025Q1

REPORT INFORMATION
  Report Type: Spontaneous
  Country: US (occurrence: US)
  Receive Date: 20250105
  Receipt Date: 20250222
  Transmission Date: 20250409
  Serious: No
  Sender: SANOFI AVENTIS
  Company Number: US-SA-2025SA001154

PATIENT
  Age: 76 Year
  Sex: Male

DRUGS (3)
  1. KEVZARA [Suspect]
     Active Substance: SARILUMAB
     Indication: Polymyalgia rheumatica
     Dosage: 200 MG, QOW
     Route: 058
     Dates: start: 20241219
  2. VALIUM [Concomitant]
     Active Substance: DIAZEPAM
  3. ACETAMINOPHEN\CODEINE PHOSPHATE [Concomitant]
     Active Substance: ACETAMINOPHEN\CODEINE PHOSPHATE

REACTIONS (5)
  - Nausea [Recovered/Resolved]
  - Peripheral swelling [Unknown]
  - Swelling [Unknown]
  - Arthralgia [Unknown]
  - Fluid retention [Unknown]

NARRATIVE: CASE EVENT DATE: 20241219
